FAERS Safety Report 19140659 (Version 1)
Quarter: 2021Q2

REPORT INFORMATION
  Report Type: Spontaneous
  Country: NL (occurrence: NL)
  Receive Date: 20210415
  Receipt Date: 20210415
  Transmission Date: 20210717
  Serious: Yes (Hospitalization, Disabling, Other)
  Sender: FDA-Public Use
  Company Number: NL-TEVA-2021-NL-1900824

PATIENT
  Sex: Female
  Weight: 65 kg

DRUGS (11)
  1. EZETIMIB TABLET 10MG / BRAND NAME NOT SPECIFIED [Concomitant]
     Active Substance: EZETIMIBE
     Dosage: THERAPY START DATE ASKU, THERAPY END DATE ASKU, 10MG
  2. AMIODARON TABLET 200MG / BRAND NAME NOT SPECIFIED [Concomitant]
     Dosage: THERAPY START DATE ASKU, THERAPY END DATE ASKU, 200 MG (MILLIGRAM)
  3. ATORVASTATINE TABLET 20MG / BRAND NAME NOT SPECIFIED [Concomitant]
     Active Substance: ATORVASTATIN
     Dosage: THERAPY START DATE ASKU, THERAPY END DATE ASKU, 20 MG (MILLIGRAM)
  4. CIPROFLOXACINE TABLET 750MG / BRAND NAME NOT SPECIFIED [Suspect]
     Active Substance: CIPROFLOXACIN
     Indication: DEVICE RELATED INFECTION
     Dosage: 2 DOSAGE FORMS DAILY; 2DD, 10 WEEKS, THERAPY END DATE ASKU
     Dates: start: 20210311
  5. ISOSORBIDEMONONITRAAT TABLET MGA  60MG / BRAND NAME NOT SPECIFIED [Concomitant]
     Active Substance: ISOSORBIDE MONONITRATE
     Dosage: THERAPY START DATE ASKU, THERAPY END DATE ASKU, 60 MG
  6. CALCIUMCARB/COLECALC KAUWTB 1,25G/800IE (500MG CA) / CALCI CHEW D3 KAU [Concomitant]
     Dosage: 1DF,1 1.25 G (GRAM) / 800 UNITS,THERAPY START DATE ASKU, THERAPY END DATE ASKU
  7. PANTOPRAZOL TABLET MSR 40MG / BRAND NAME NOT SPECIFIED [Concomitant]
     Active Substance: PANTOPRAZOLE
     Dosage: THERAPY START DATE ASKU, THERAPY END DATE ASKU, 40 MG (MILLIGRAM)
  8. RIFAMPICINE CAPSULE 300MG / BRAND NAME NOT SPECIFIED [Suspect]
     Active Substance: RIFAMPIN
     Indication: DEVICE RELATED INFECTION
     Dosage: 2 DOSAGE FORMS DAILY; 2DD, 10 DAYS,  THERAPY END DATE ASKU
     Dates: start: 20210311
  9. AMLODIPINE TABLET   5MG / BRAND NAME NOT SPECIFIED [Concomitant]
     Active Substance: AMLODIPINE BESYLATE
     Dosage: THERAPY START DATE ASKU, THERAPY END DATE ASKU, 5 MG (MILLIGRAM)
  10. METOPROLOL TABLET MGA  50MG (SUCCINAAT) / BRAND NAME NOT SPECIFIED [Concomitant]
     Active Substance: METOPROLOL SUCCINATE
     Dosage: THERAPY START DATE ASKU, THERAPY END DATE ASKU, 50 MG (MILLIGRAM)
  11. NADROPARINE INJVLST  9500IE/ML / FRAXIPARINE INJVLST 2850IE/0,3ML  (95 [Concomitant]
     Dosage: 9500 IU / ML,THERAPY START DATE ASKU, THERAPY END DATE ASKU

REACTIONS (3)
  - Renal tubular necrosis [Recovering/Resolving]
  - Vomiting [Recovering/Resolving]
  - Diarrhoea [Recovering/Resolving]
